FAERS Safety Report 10544575 (Version 3)
Quarter: 2015Q3

REPORT INFORMATION
  Report Type: Report from Study
  Country: US (occurrence: US)
  Receive Date: 20141027
  Receipt Date: 20150807
  Transmission Date: 20151125
  Serious: Yes (Hospitalization)
  Sender: FDA-Public Use
  Company Number: US-GLAXOSMITHKLINE-R0019970A

PATIENT
  Age: 80 Year
  Sex: Male
  Weight: 65.9 kg

DRUGS (6)
  1. REQUIP [Suspect]
     Active Substance: ROPINIROLE HYDROCHLORIDE
     Indication: PARKINSONISM
     Dosage: 4 MG SINGLE DOSE
     Route: 048
     Dates: start: 2005
  2. CARBIDOPA. [Suspect]
     Active Substance: CARBIDOPA
     Indication: PARKINSONISM
     Dosage: 87.5 MG SINGLE DOSE
     Route: 048
     Dates: start: 2005
  3. PLACEBO [Suspect]
     Active Substance: UNSPECIFIED INGREDIENT
     Indication: PROPHYLAXIS
     Route: 030
     Dates: start: 20110909, end: 20110909
  4. FOLTX [Concomitant]
     Active Substance: CYANOCOBALAMIN CO-57\FOLIC ACID\PYRIDOXINE HYDROCHLORIDE
     Indication: SUPPLEMENTATION THERAPY
     Dosage: UNK
     Route: 048
     Dates: start: 2005
  5. MINRIN [Concomitant]
     Active Substance: DESMOPRESSIN ACETATE
     Indication: HYPOTENSION
     Dosage: UNK
     Route: 048
     Dates: start: 20110706
  6. BLINDED HZ/SU + AS01B [Suspect]
     Active Substance: INVESTIGATIONAL PRODUCT
     Indication: PROPHYLAXIS
     Route: 030
     Dates: start: 20110909, end: 20110909

REACTIONS (1)
  - Orthostatic hypotension [Recovered/Resolved]

NARRATIVE: CASE EVENT DATE: 20111029
